FAERS Safety Report 10592673 (Version 1)
Quarter: 2014Q4

REPORT INFORMATION
  Report Type: Spontaneous
  Country: US (occurrence: None)
  Receive Date: 20141118
  Receipt Date: 20141118
  Transmission Date: 20150529
  Serious: Yes (Death, Life-Threatening, Hospitalization)
  Sender: FDA-Public Use
  Company Number: None

PATIENT
  Age: 66 Year
  Sex: Male
  Weight: 96 kg

DRUGS (14)
  1. APIXABAN [Suspect]
     Active Substance: APIXABAN
     Indication: ATRIAL FIBRILLATION
     Route: 048
     Dates: start: 20140122, end: 20141111
  2. ATORVASTATIN [Concomitant]
     Active Substance: ATORVASTATIN
  3. GABAPENTIN. [Concomitant]
     Active Substance: GABAPENTIN
  4. TAMSULOSIN [Concomitant]
     Active Substance: TAMSULOSIN
  5. METOPROLOL SUCCINATE. [Concomitant]
     Active Substance: METOPROLOL SUCCINATE
  6. POTASSIUM CHLORIDE. [Concomitant]
     Active Substance: POTASSIUM CHLORIDE
  7. VITAMIN B12 [Concomitant]
     Active Substance: CYANOCOBALAMIN
  8. TRAMADOL [Concomitant]
     Active Substance: TRAMADOL
  9. VITAMIN D3 [Concomitant]
     Active Substance: CHOLECALCIFEROL
  10. ASPIRIN. [Concomitant]
     Active Substance: ASPIRIN
  11. BACLOFEN. [Concomitant]
     Active Substance: BACLOFEN
  12. APIXABAN [Suspect]
     Active Substance: APIXABAN
     Indication: CEREBROVASCULAR ACCIDENT PROPHYLAXIS
     Route: 048
     Dates: start: 20140122, end: 20141111
  13. TYLENOL [Concomitant]
     Active Substance: ACETAMINOPHEN
  14. FUROSEMIDE. [Concomitant]
     Active Substance: FUROSEMIDE

REACTIONS (6)
  - Thrombocytopenia [None]
  - Head injury [None]
  - Haemorrhagic stroke [None]
  - Subarachnoid haemorrhage [None]
  - Seizure [None]
  - Haemorrhage intracranial [None]

NARRATIVE: CASE EVENT DATE: 20141111
